FAERS Safety Report 4337746-X (Version None)
Quarter: 2004Q2

REPORT INFORMATION
  Report Type: 
  Country: None (occurrence: None)
  Receive Date: 20040412
  Receipt Date: 20040329
  Transmission Date: 20050107
  Serious: Yes (Death)
  Sender: FDA-Public Use
  Company Number: 001190

PATIENT
  Sex: Female

DRUGS (4)
  1. MEDROXYPROGESTERONE ACETATE (MEDROCYPROGESTERONE ACETATE) TABLET [Suspect]
  2. ESTRACE [Suspect]
  3. ESTRACE [Suspect]
  4. PROVERA [Suspect]

REACTIONS (1)
  - CEREBROVASCULAR ACCIDENT [None]
